FAERS Safety Report 5072106-8 (Version None)
Quarter: 2006Q3

REPORT INFORMATION
  Report Type: 
  Country: None (occurrence: None)
  Receive Date: 20060714
  Receipt Date: 20060504
  Transmission Date: 20061208
  Serious: No
  Sender: FDA-Public Use
  Company Number: 2006SP002037

PATIENT
  Age: 64 Year
  Sex: Male
  Weight: 90.7194 kg

DRUGS (17)
  1. LUNESTA [Suspect]
     Indication: INSOMNIA
     Dosage: 3 MG;1X;ORAL
     Route: 048
     Dates: start: 20060501, end: 20060501
  2. POTASSIUM CHLORIDE [Concomitant]
  3. SIMVASTATIN [Concomitant]
  4. FUROSEMIDE [Concomitant]
  5. TRAMADOL HCL [Concomitant]
  6. FOSINOPRIL SODIUM [Concomitant]
  7. NEFAZODONE HCL [Concomitant]
  8. MIDODRINE HYDROCHLORIDE [Concomitant]
  9. ASPIRIN [Concomitant]
  10. RANITIDINE [Concomitant]
  11. LORAZEPAM [Concomitant]
  12. MULTIVITAMIN [Concomitant]
  13. SPIRONOLACTONE [Concomitant]
  14. TEGRETOL [Concomitant]
  15. GEMFIBROZIL [Concomitant]
  16. NIACIN [Concomitant]
  17. TRAZODONE HCL [Concomitant]

REACTIONS (4)
  - DRUG INEFFECTIVE [None]
  - DYSGEUSIA [None]
  - MIDDLE INSOMNIA [None]
  - THINKING ABNORMAL [None]
